FAERS Safety Report 12282130 (Version 1)
Quarter: 2016Q2

REPORT INFORMATION
  Report Type: Spontaneous
  Country: US (occurrence: US)
  Receive Date: 20160419
  Receipt Date: 20160419
  Transmission Date: 20160815
  Serious: Yes (Other)
  Sender: FDA-Public Use
  Company Number: US-MDT-ADR-2016-00704

PATIENT
  Age: 16 Year
  Sex: Male

DRUGS (2)
  1. LIORESAL [Suspect]
     Active Substance: BACLOFEN
     Dosage: 200MCG/DAY
     Route: 037
     Dates: end: 201603
  2. LIORESAL [Suspect]
     Active Substance: BACLOFEN
     Dosage: 530MCG/DAY
     Route: 037
     Dates: start: 201603

REACTIONS (2)
  - Therapeutic response decreased [Unknown]
  - No therapeutic response [Unknown]
